FAERS Safety Report 20077654 (Version 1)
Quarter: 2021Q4

REPORT INFORMATION
  Report Type: Report from Study
  Country: CA (occurrence: CA)
  Receive Date: 20211116
  Receipt Date: 20211116
  Transmission Date: 20220303
  Serious: Yes (Other)
  Sender: FDA-Public Use
  Company Number: CA-JNJFOC-20211114784

PATIENT
  Age: 11 Year
  Sex: Male
  Weight: 34 kg

DRUGS (2)
  1. REMICADE [Suspect]
     Active Substance: INFLIXIMAB
     Indication: Colitis ulcerative
     Dosage: 08-NOV-2021, THE PATIENT RECEIVED 6TH INFUSION OF DOSE 400MG.
     Route: 042
     Dates: start: 20210731
  2. REMICADE [Suspect]
     Active Substance: INFLIXIMAB
     Dosage: 0,1,4 Q4
     Route: 042
     Dates: start: 20211108

REACTIONS (8)
  - Haematochezia [Not Recovered/Not Resolved]
  - General physical health deterioration [Not Recovered/Not Resolved]
  - Diarrhoea [Not Recovered/Not Resolved]
  - Abdominal pain [Not Recovered/Not Resolved]
  - Vomiting [Not Recovered/Not Resolved]
  - Frequent bowel movements [Not Recovered/Not Resolved]
  - Incorrect dose administered [Unknown]
  - Off label use [Unknown]

NARRATIVE: CASE EVENT DATE: 20211007
